FAERS Safety Report 8431255-4 (Version None)
Quarter: 2012Q2

REPORT INFORMATION
  Report Type: 
  Country: None (occurrence: None)
  Receive Date: 20120613
  Receipt Date: 20120529
  Transmission Date: 20120825
  Serious: Yes (Disabling, Other)
  Sender: FDA-Public Use
  Company Number: CO-AMGEN-COLCT2011057526

PATIENT
  Age: 49 Year
  Sex: Female

DRUGS (18)
  1. TRAZODONE HCL [Concomitant]
     Dosage: UNK
  2. QUINIDINE HCL [Concomitant]
     Dosage: 50 MG, UNK
  3. ISONIAZID [Concomitant]
     Indication: PSORIATIC ARTHROPATHY
     Dosage: 100 MG, 1X/DAY
     Route: 048
     Dates: start: 20100201
  4. LORATADINE [Concomitant]
     Dosage: 10 MG, UNK
  5. CEPHALEXIN [Concomitant]
     Dosage: UNK
  6. OMEPRAZOLE [Concomitant]
     Dosage: 20 MG, UNK
  7. ETANERCEPT [Suspect]
     Indication: PSORIATIC ARTHROPATHY
     Dosage: 50 MG, 2X/WEEK
     Route: 058
     Dates: start: 20111022
  8. ETANERCEPT [Suspect]
     Dosage: 50 MG, WEEKLY
     Route: 058
  9. LORAZEPAM [Concomitant]
     Dosage: UNK
  10. LOVASTATIN [Concomitant]
     Dosage: 20 MG, UNK
  11. PYRIDOXINE HCL [Concomitant]
     Dosage: UNK
  12. LEVOTHYROXINE SODIUM [Concomitant]
     Indication: HYPOTHYROIDISM
     Dosage: 50 MG, 1X/DAY
     Route: 048
     Dates: start: 20100201
  13. DULOXETIME HYDROCHLORIDE [Concomitant]
     Dosage: 60 MG, UNK
  14. FLUOXETINE [Concomitant]
     Dosage: UNK
  15. METFORMIN HCL [Concomitant]
     Dosage: 850 MG, UNK
  16. MIRTAZAPINE [Concomitant]
     Dosage: 20 MG, UNK
  17. CLONAZEPAM [Concomitant]
     Dosage: UNK
  18. INSULIN [Concomitant]
     Dosage: 10 MG, 1X/DAY

REACTIONS (7)
  - MOBILITY DECREASED [None]
  - ARTHRALGIA [None]
  - MUSCLE SPASMS [None]
  - PAIN IN EXTREMITY [None]
  - PYREXIA [None]
  - DYSSTASIA [None]
  - BACK PAIN [None]
